FAERS Safety Report 8904125 (Version 1)
Quarter: 2012Q4

REPORT INFORMATION
  Report Type: 
  Country: US (occurrence: US)
  Receive Date: 20121112
  Receipt Date: 20121112
  Transmission Date: 20130627
  Serious: No
  Sender: FDA-Public Use
  Company Number: US-COVIDIEN/TYCO HEALTHCARE/MALLINCKRODT-T201203191

PATIENT
  Sex: Male

DRUGS (6)
  1. FENTANYL TRANSDERMAL SYSTEM [Suspect]
     Indication: BACK PAIN
     Dosage: 50 ug/hr, Q 72 hrs
     Route: 062
     Dates: start: 201206
  2. FENTANYL TRANSDERMAL SYSTEM [Suspect]
     Dosage: 25 ug/hr, UNK
  3. FENTANYL [Suspect]
     Indication: BACK PAIN
     Dosage: 12.5 ug/hr, UNK
  4. HYDROCODONE W/APAP                 /01554201/ [Concomitant]
     Indication: BREAKTHROUGH PAIN
     Dosage: UNK
  5. TRAMADOL [Concomitant]
     Indication: ARTHRITIS
     Dosage: UNK
  6. SIMVASTATIN [Concomitant]
     Indication: BLOOD CHOLESTEROL INCREASED
     Dosage: UNK

REACTIONS (3)
  - Sensation of heaviness [Not Recovered/Not Resolved]
  - Muscle tightness [Not Recovered/Not Resolved]
  - Pain in extremity [Recovering/Resolving]
